FAERS Safety Report 10196220 (Version 1)
Quarter: 2014Q2

REPORT INFORMATION
  Report Type: Spontaneous
  Country: FR (occurrence: FR)
  Receive Date: 20140527
  Receipt Date: 20140527
  Transmission Date: 20141212
  Serious: Yes (Hospitalization)
  Sender: FDA-Public Use
  Company Number: PHHY2014FR061820

PATIENT
  Age: 54 Year
  Sex: Female

DRUGS (5)
  1. VOLTARENE LP [Suspect]
     Indication: NECK PAIN
     Dosage: 75 MG, BID
     Route: 048
     Dates: start: 20130202, end: 20130205
  2. OMEPRAZOLE [Suspect]
     Indication: GASTROOESOPHAGEAL REFLUX DISEASE
     Dosage: 20 MG, QD
     Route: 048
     Dates: start: 20130202, end: 20130205
  3. TETRAZEPAM [Suspect]
     Indication: NECK PAIN
     Dosage: 50 MG, QD
     Route: 048
     Dates: start: 20130202, end: 20130205
  4. EFFERALGAN [Concomitant]
     Dosage: 1 G, EVERY 6 HOURS
     Dates: start: 20130202
  5. LUTERAN [Concomitant]
     Dosage: UNK UKN, UNK

REACTIONS (4)
  - Lichenoid keratosis [Recovered/Resolved]
  - Rash [Unknown]
  - Skin plaque [Unknown]
  - Skin lesion [Unknown]
